FAERS Safety Report 12169118 (Version 2)
Quarter: 2016Q1

REPORT INFORMATION
  Report Type: Spontaneous
  Country: TR (occurrence: TR)
  Receive Date: 20160310
  Receipt Date: 20160311
  Transmission Date: 20160526
  Serious: Yes (Hospitalization)
  Sender: FDA-Public Use
  Company Number: PHHY2016TR030988

PATIENT
  Age: 43 Year
  Sex: Male

DRUGS (3)
  1. PEGYLATED INTERFERON ALFA-2A [Suspect]
     Active Substance: PEGINTERFERON ALFA-2A
     Indication: HEPATITIS C
     Dosage: 135 UG, QW
     Route: 058
  2. TELAPREVIR [Suspect]
     Active Substance: TELAPREVIR
     Indication: HEPATITIS C
     Dosage: 750 MG, TID
     Route: 048
  3. RIBAVIRIN. [Suspect]
     Active Substance: RIBAVIRIN
     Indication: HEPATITIS C
     Dosage: 600 MG, QW (200 MG/DAY, 3 TIMES A WEEK)
     Route: 048

REACTIONS (4)
  - Nausea [Unknown]
  - Condition aggravated [Unknown]
  - Vomiting [Unknown]
  - Malnutrition [Unknown]
